FAERS Safety Report 5869799-1 (Version None)
Quarter: 2008Q3

REPORT INFORMATION
  Report Type: 
  Country: None (occurrence: None)
  Receive Date: 20080902
  Receipt Date: 20080819
  Transmission Date: 20090109
  Serious: Yes (Other)
  Sender: FDA-Public Use
  Company Number: 08-001392

PATIENT

DRUGS (1)
  1. LOESTRIN 24 FE [Suspect]
     Dosage: 20/1000 UG, QD, TRANSPLACENTAL
     Route: 064
     Dates: start: 20080601, end: 20080601

REACTIONS (3)
  - ABORTION INDUCED [None]
  - DRUG EXPOSURE DURING PREGNANCY [None]
  - MATERNAL DRUGS AFFECTING FOETUS [None]
